FAERS Safety Report 4749110-X (Version None)
Quarter: 2005Q3

REPORT INFORMATION
  Report Type: 
  Country: None (occurrence: None)
  Receive Date: 20050819
  Receipt Date: 20050812
  Transmission Date: 20060218
  Serious: Yes (Other)
  Sender: FDA-Public Use
  Company Number: US-ROCHE-414144

PATIENT
  Age: 48 Year
  Sex: Female
  Weight: 66.2 kg

DRUGS (2)
  1. COPEGUS [Suspect]
     Indication: HEPATITIS C
     Route: 048
     Dates: start: 20041213
  2. PEG-INTRON [Suspect]
     Indication: HEPATITIS C
     Route: 058
     Dates: start: 20041213

REACTIONS (1)
  - LOSS OF CONSCIOUSNESS [None]
